FAERS Safety Report 4400571-5 (Version None)
Quarter: 2004Q3

REPORT INFORMATION
  Report Type: 
  Country: None (occurrence: None)
  Receive Date: 20040716
  Receipt Date: 20040716
  Transmission Date: 20050211
  Serious: No
  Sender: FDA-Public Use
  Company Number: None

PATIENT
  Age: 57 Year
  Sex: Male
  Weight: 122.4712 kg

DRUGS (2)
  1. AMIODARONE HCL [Suspect]
     Indication: ATRIAL FIBRILLATION
     Dosage: 300MG/DA
     Dates: start: 19970915, end: 20010515
  2. AMIODARONE HCL [Suspect]
     Indication: ATRIAL FIBRILLATION
     Dosage: 300MG/DA
     Dates: start: 20020415, end: 20040315

REACTIONS (3)
  - CHROMATURIA [None]
  - HAEMOLYTIC ANAEMIA [None]
  - MYELODYSPLASTIC SYNDROME [None]
